FAERS Safety Report 8121231 (Version 3)
Quarter: 2018Q1

REPORT INFORMATION
  Report Type: Report from Study
  Country: JP (occurrence: JP)
  Receive Date: 20110906
  Receipt Date: 20180119
  Transmission Date: 20180509
  Serious: Yes (Death, Hospitalization, Other)
  Sender: FDA-Public Use
  Company Number: PHHY2010JP59793

PATIENT
  Age: 65 Year
  Sex: Male
  Weight: 58 kg

DRUGS (15)
  1. SELBEX [Concomitant]
     Active Substance: TEPRENONE
     Indication: CHRONIC GASTRITIS
     Dosage: 1 G, QD
     Route: 048
  2. BERIZYM [Concomitant]
     Active Substance: CELLULASE\DIASTASE\LIPASE
     Indication: CHRONIC GASTRITIS
     Dosage: 1 G, QD
     Route: 048
  3. CAMOSTAT MESILATE (LEANAC) [Concomitant]
     Indication: RENAL CELL CARCINOMA
     Dosage: 400 MG, QD
     Route: 048
  4. PARIET [Concomitant]
     Active Substance: RABEPRAZOLE SODIUM
     Indication: CHRONIC GASTRITIS
     Dosage: 10 MG, QD
     Route: 048
  5. AFINITOR [Suspect]
     Active Substance: EVEROLIMUS
     Dosage: 5 MG, QD
     Route: 048
     Dates: start: 20100726, end: 20100927
  6. AFINITOR [Suspect]
     Active Substance: EVEROLIMUS
     Dosage: 5 MG, QD
     Route: 048
     Dates: start: 20100726, end: 20100927
  7. AFINITOR [Suspect]
     Active Substance: EVEROLIMUS
     Indication: METASTATIC RENAL CELL CARCINOMA
     Dosage: 10 MG, QD
     Route: 048
     Dates: start: 20100516, end: 20100522
  8. AFINITOR [Suspect]
     Active Substance: EVEROLIMUS
     Dosage: 10 MG, QD
     Route: 048
     Dates: start: 20100525, end: 20100604
  9. BIOFERMIN [Concomitant]
     Active Substance: BACILLUS SUBTILIS\LACTOBACILLUS ACIDOPHILUS\STREPTOCOCCUS FAECAIS
     Indication: CHRONIC GASTRITIS
     Dosage: 2 G, QD
     Route: 048
  10. ACTOS [Concomitant]
     Active Substance: PIOGLITAZONE HYDROCHLORIDE
     Indication: PRODUCT USED FOR UNKNOWN INDICATION
     Dosage: 30 MG, QD
     Route: 048
     Dates: start: 20100331
  11. NOVORAPID [Concomitant]
     Active Substance: INSULIN ASPART
     Indication: PRODUCT USED FOR UNKNOWN INDICATION
     Dosage: 12 IU, UNK
     Route: 058
     Dates: start: 20100714
  12. AFINITOR [Suspect]
     Active Substance: EVEROLIMUS
     Dosage: 10 MG, QD
     Route: 048
     Dates: start: 20100525, end: 20100604
  13. PRAVASTATIN SODIUM (MEVALOTIN) [Concomitant]
     Indication: HYPERLIPIDAEMIA
     Dosage: 10 MG, QD
     Route: 048
  14. TEMSIROLIMUS [Suspect]
     Active Substance: TEMSIROLIMUS
     Indication: METASTATIC RENAL CELL CARCINOMA
     Dosage: UNK
     Route: 041
     Dates: start: 20101206, end: 20110104
  15. LEVEMIR [Concomitant]
     Active Substance: INSULIN DETEMIR
     Indication: PRODUCT USED FOR UNKNOWN INDICATION
     Dosage: 6 IU, QD
     Route: 058
     Dates: start: 20100714

REACTIONS (12)
  - Interstitial lung disease [Fatal]
  - Lung disorder [Fatal]
  - Dyspnoea exertional [Fatal]
  - Dyspnoea [Fatal]
  - Epistaxis [Recovering/Resolving]
  - Stomatitis [Recovering/Resolving]
  - Hypoxia [Fatal]
  - Bronchoalveolar lavage abnormal [Unknown]
  - Cough [Fatal]
  - Respiratory failure [Fatal]
  - Hyperglycaemia [Recovering/Resolving]
  - Lymphocyte count increased [Unknown]

NARRATIVE: CASE EVENT DATE: 20100521
